FAERS Safety Report 10876670 (Version 1)
Quarter: 2015Q1

REPORT INFORMATION
  Report Type: Report from Study
  Country: US (occurrence: US)
  Receive Date: 20150302
  Receipt Date: 20150302
  Transmission Date: 20150721
  Serious: Yes (Other)
  Sender: FDA-Public Use
  Company Number: PHEH2014US021692

PATIENT
  Sex: Female

DRUGS (2)
  1. GLEEVEC [Suspect]
     Active Substance: IMATINIB MESYLATE
     Indication: METASTASES TO LUNG
  2. GLEEVEC [Suspect]
     Active Substance: IMATINIB MESYLATE
     Indication: UTERINE CANCER
     Dosage: 300 MG, BID
     Route: 048

REACTIONS (12)
  - Osteoarthritis [Unknown]
  - Vomiting [Unknown]
  - Rheumatoid arthritis [Unknown]
  - Abdominal discomfort [Unknown]
  - Renal disorder [Unknown]
  - Arthralgia [Unknown]
  - Pain in extremity [Unknown]
  - Abdominal pain upper [Unknown]
  - Malaise [Unknown]
  - Product use issue [Unknown]
  - Anal fissure [Unknown]
  - Pain [Unknown]
